FAERS Safety Report 5800256-4 (Version None)
Quarter: 2008Q3

REPORT INFORMATION
  Report Type: 
  Country: None (occurrence: None)
  Receive Date: 20080703
  Receipt Date: 20080625
  Transmission Date: 20090109
  Serious: Yes (Hospitalization)
  Sender: FDA-Public Use
  Company Number: PHHY2008CA05657

PATIENT
  Sex: Female

DRUGS (11)
  1. SANDOSTATIN LAR [Suspect]
     Dosage: 10 MG, QMO
     Route: 030
     Dates: start: 20080104, end: 20080327
  2. SANDOSTATIN LAR [Suspect]
     Dosage: 20 MG, QMO
     Route: 030
     Dates: start: 20080328
  3. INSULIN [Concomitant]
     Indication: BLOOD GLUCOSE FLUCTUATION
     Dosage: UNK, BID
  4. METFORMIN HCL [Concomitant]
     Dosage: 500 MG, BID
  5. GLUCONORM [Concomitant]
     Dosage: 3 MG, TID
  6. GLUCONORM [Concomitant]
     Dosage: 2 MG, TID
  7. RAMIPRIL [Concomitant]
     Dosage: 5 MG, QD
  8. NOVO-DOCUSATE [Concomitant]
     Dosage: 100 MG, BID
  9. ASPIRIN [Concomitant]
     Dosage: 81 MG, QD
  10. DILTIAZEM HCL [Concomitant]
  11. ACTOS [Concomitant]
     Dosage: 45 MG, QD
     Route: 048

REACTIONS (3)
  - BLOOD GLUCOSE FLUCTUATION [None]
  - HYPERGLYCAEMIA [None]
  - URINARY TRACT INFECTION [None]
